FAERS Safety Report 22540095 (Version 1)
Quarter: 2023Q2

REPORT INFORMATION
  Report Type: Spontaneous
  Country: US (occurrence: US)
  Receive Date: 20230609
  Receipt Date: 20230609
  Transmission Date: 20230721
  Serious: No
  Sender: FDA-Public Use
  Company Number: US-SPECGX-T202301038

PATIENT
  Sex: Male

DRUGS (2)
  1. ACETAMINOPHEN\HYDROCODONE [Suspect]
     Active Substance: ACETAMINOPHEN\HYDROCODONE
     Indication: Pain
     Dosage: 10/325 MG, 4 PILLS A DAY
     Route: 065
  2. ACETAMINOPHEN\HYDROCODONE [Suspect]
     Active Substance: ACETAMINOPHEN\HYDROCODONE
     Dosage: 10/325 MG, TOOK 4 PILLS AT ONCE
     Route: 065

REACTIONS (4)
  - Intentional product use issue [Unknown]
  - Therapeutic response delayed [Unknown]
  - Therapeutic response shortened [Unknown]
  - Drug ineffective [Unknown]
